FAERS Safety Report 20826162 (Version 1)
Quarter: 2022Q2

REPORT INFORMATION
  Report Type: Spontaneous
  Country: PK (occurrence: PK)
  Receive Date: 20220513
  Receipt Date: 20220513
  Transmission Date: 20220721
  Serious: Yes (Other)
  Sender: FDA-Public Use
  Company Number: PK-PFIZER INC-202200690993

PATIENT
  Age: 17 Year
  Sex: Male

DRUGS (7)
  1. MEROPENEM [Suspect]
     Active Substance: MEROPENEM
     Dosage: UNK
  2. BUFLOMEDIL HYDROCHLORIDE [Suspect]
     Active Substance: BUFLOMEDIL HYDROCHLORIDE
     Dosage: UNK
  3. PANADOL [Suspect]
     Active Substance: ACETAMINOPHEN
     Dosage: 2 DF
  4. OMEPRAZOLE SODIUM [Suspect]
     Active Substance: OMEPRAZOLE SODIUM
     Dosage: UNK
  5. TRANSAMIN [Suspect]
     Active Substance: TRANEXAMIC ACID
     Dosage: UNK
  6. PHENIRAMINE [Suspect]
     Active Substance: PHENIRAMINE
     Dosage: UNK
  7. TRAMADOL [Suspect]
     Active Substance: TRAMADOL
     Dosage: UNK

REACTIONS (12)
  - Aplastic anaemia [Unknown]
  - Anal haemorrhage [Unknown]
  - Chest pain [Unknown]
  - Abdominal pain [Unknown]
  - Mouth haemorrhage [Unknown]
  - Vomiting [Unknown]
  - Rash [Unknown]
  - Pallor [Unknown]
  - Red blood cell count decreased [Unknown]
  - Platelet count decreased [Unknown]
  - Neutrophil count decreased [Unknown]
  - Lymphocyte count increased [Unknown]
